FAERS Safety Report 5037099-8 (Version None)
Quarter: 2006Q2

REPORT INFORMATION
  Report Type: 
  Country: None (occurrence: None)
  Receive Date: 20060623
  Receipt Date: 20060616
  Transmission Date: 20061013
  Serious: Yes (Other)
  Sender: FDA-Public Use
  Company Number: 2006077352

PATIENT
  Sex: Male

DRUGS (3)
  1. LYRICA [Suspect]
     Indication: NEURALGIA
     Dosage: 150 MG (75 MG, 2 IN 1 D), ORAL
     Route: 048
  2. CITALOPRAM HYDROBROMIDE [Concomitant]
  3. FENTANYL [Concomitant]

REACTIONS (3)
  - EUPHORIC MOOD [None]
  - GENERAL PHYSICAL HEALTH DETERIORATION [None]
  - PSYCHOTIC DISORDER [None]
